FAERS Safety Report 7208711-X (Version None)
Quarter: 2010Q4

REPORT INFORMATION
  Report Type: 
  Country: None (occurrence: None)
  Receive Date: 20101222
  Receipt Date: 20101207
  Transmission Date: 20110411
  Serious: Yes (Hospitalization)
  Sender: FDA-Public Use
  Company Number: 2010US000088

PATIENT
  Age: 71 Year
  Sex: Female

DRUGS (1)
  1. ENTEREG [Suspect]
     Indication: POSTOPERATIVE ILEUS
     Dosage: 12 MG; PO
     Route: 048
     Dates: start: 20100501, end: 20100501

REACTIONS (3)
  - IATROGENIC INJURY [None]
  - PROCEDURAL COMPLICATION [None]
  - URETERIC INJURY [None]
